FAERS Safety Report 8532237-4 (Version None)
Quarter: 2012Q3

REPORT INFORMATION
  Report Type: 
  Country: None (occurrence: None)
  Receive Date: 20120723
  Receipt Date: 20120719
  Transmission Date: 20120928
  Serious: Yes (Death, Other)
  Sender: FDA-Public Use
  Company Number: US-AMGEN-USASP2012035065

PATIENT
  Age: 79 Year
  Sex: Male

DRUGS (3)
  1. SENSIPAR [Suspect]
     Dosage: 60 MG, QD
     Dates: start: 20120212
  2. SENSIPAR [Suspect]
     Dosage: UNK
  3. SENSIPAR [Suspect]
     Indication: RENAL FAILURE CHRONIC
     Dosage: 30 MG, QD
     Dates: start: 20110419

REACTIONS (1)
  - SEPSIS [None]
